FAERS Safety Report 13521475 (Version 1)
Quarter: 2017Q2

REPORT INFORMATION
  Report Type: Spontaneous
  Country: US (occurrence: US)
  Receive Date: 20170505
  Receipt Date: 20170505
  Transmission Date: 20170830
  Serious: No
  Sender: FDA-Public Use
  Company Number: None

PATIENT
  Age: 24 Year
  Sex: Male
  Weight: 63.1 kg

DRUGS (3)
  1. COLISTIMETHATE [Suspect]
     Active Substance: COLISTIMETHATE SODIUM
     Indication: CYSTIC FIBROSIS
     Route: 040
  2. COLISTIMETHATE [Suspect]
     Active Substance: COLISTIMETHATE SODIUM
     Indication: CONDITION AGGRAVATED
     Route: 040
  3. MEROPENEM. [Concomitant]
     Active Substance: MEROPENEM

REACTIONS (3)
  - Throat tightness [None]
  - Pharyngeal paraesthesia [None]
  - Throat irritation [None]

NARRATIVE: CASE EVENT DATE: 20170504
